FAERS Safety Report 13005180 (Version 1)
Quarter: 2016Q4

REPORT INFORMATION
  Report Type: Spontaneous
  Country: BR (occurrence: BR)
  Receive Date: 20161207
  Receipt Date: 20161207
  Transmission Date: 20170207
  Serious: Yes (Death, Life-Threatening, Hospitalization)
  Sender: FDA-Public Use
  Company Number: BR-B.I. PHARMACEUTICALS,INC./RIDGEFIELD-2016-BI-083421

PATIENT
  Age: 44 Year
  Sex: Male
  Weight: 80 kg

DRUGS (7)
  1. ALGY FLANDERIL [Interacting]
     Active Substance: IBUPROFEN
     Indication: PRODUCT USED FOR UNKNOWN INDICATION
     Route: 065
  2. MAREVAN [Concomitant]
     Active Substance: WARFARIN SODIUM
     Indication: PORTAL HYPERTENSION
  3. OMEPRAZOL [Concomitant]
     Active Substance: OMEPRAZOLE
     Indication: VARICOSE ULCERATION
     Route: 048
     Dates: start: 1996, end: 20160318
  4. MAREVAN [Concomitant]
     Active Substance: WARFARIN SODIUM
     Indication: HYPERCOAGULATION
     Route: 048
     Dates: start: 1988, end: 20160318
  5. ATENSINA [Suspect]
     Active Substance: CLONIDINE
     Indication: PRODUCT USED FOR UNKNOWN INDICATION
     Route: 065
  6. PROPRANOLOL [Concomitant]
     Active Substance: PROPRANOLOL\PROPRANOLOL HYDROCHLORIDE
     Indication: PRODUCT USED FOR UNKNOWN INDICATION
     Route: 048
     Dates: start: 20021231, end: 200302
  7. HIDANTAL [Concomitant]
     Active Substance: PHENYTOIN SODIUM
     Indication: PROPHYLAXIS
     Route: 048
     Dates: start: 201106, end: 201507

REACTIONS (7)
  - Somnolence [Fatal]
  - Cerebrovascular accident [Fatal]
  - Malaise [Fatal]
  - Coma [Fatal]
  - Multiple organ dysfunction syndrome [Fatal]
  - Hypothermia [Fatal]
  - Gastric haemorrhage [Fatal]

NARRATIVE: CASE EVENT DATE: 20160315
